FAERS Safety Report 9707337 (Version 1)
Quarter: 2013Q4

REPORT INFORMATION
  Report Type: Spontaneous
  Country: US (occurrence: US)
  Receive Date: 20131125
  Receipt Date: 20131125
  Transmission Date: 20140711
  Serious: No
  Sender: FDA-Public Use
  Company Number: US-GLAXOSMITHKLINE-A1023224A

PATIENT
  Age: 70 Year
  Sex: Female

DRUGS (23)
  1. FLOVENT [Suspect]
     Indication: ASTHMA
     Dosage: 1PUFF TWICE PER DAY
     Route: 055
     Dates: start: 20130507
  2. MIRALAX [Concomitant]
  3. FLAXSEED OIL [Concomitant]
  4. CINNAMON [Concomitant]
  5. PRAVASTATIN [Concomitant]
  6. BABY ASPIRIN [Concomitant]
  7. MULTIVITAMIN [Concomitant]
  8. PREMPRO [Concomitant]
  9. SINGULAIR [Concomitant]
  10. AMATINE [Concomitant]
  11. JANUVIA [Concomitant]
  12. GLIPIZIDE [Concomitant]
  13. PRO-AIR [Concomitant]
  14. DIAVAN [Concomitant]
  15. SYNTHROID [Concomitant]
  16. CLONIDINE [Concomitant]
  17. CALCIUM [Concomitant]
  18. MAGNESIUM [Concomitant]
  19. STOOL SOFTENER [Concomitant]
  20. FISH OIL [Concomitant]
  21. PROBIOTIC [Concomitant]
  22. VALTREX [Concomitant]
  23. LORATADINE [Concomitant]

REACTIONS (2)
  - Cough [Recovering/Resolving]
  - Insomnia [Unknown]
